FAERS Safety Report 9103355 (Version 1)
Quarter: 2013Q1

REPORT INFORMATION
  Report Type: Spontaneous
  Country: US (occurrence: US)
  Receive Date: 20130219
  Receipt Date: 20130219
  Transmission Date: 20140127
  Serious: Yes (Other)
  Sender: FDA-Public Use
  Company Number: US-GLAXOSMITHKLINE-A0756020A

PATIENT
  Age: 70 Year
  Sex: Male
  Weight: 79.9 kg

DRUGS (1)
  1. AVANDIA [Suspect]
     Indication: DIABETES MELLITUS
     Dosage: 4MG PER DAY
     Route: 048
     Dates: start: 2004, end: 200609

REACTIONS (2)
  - Cardiac failure congestive [Not Recovered/Not Resolved]
  - Pain [Unknown]
